FAERS Safety Report 21492748 (Version 2)
Quarter: 2022Q4

REPORT INFORMATION
  Report Type: Spontaneous
  Country: US (occurrence: US)
  Receive Date: 20221021
  Receipt Date: 20221109
  Transmission Date: 20230112
  Serious: Yes (Other)
  Sender: FDA-Public Use
  Company Number: US-PFIZER INC-PV202200076482

PATIENT
  Age: 56 Year
  Sex: Female
  Weight: 90.703 kg

DRUGS (9)
  1. TESSALON [Suspect]
     Active Substance: BENZONATATE
     Indication: Cough
     Dosage: DATE STARTED A FEW DAYS
  2. CLARITIN [Suspect]
     Active Substance: LORATADINE
     Indication: Cough
     Dosage: UNK
  3. CLARITIN [Suspect]
     Active Substance: LORATADINE
     Indication: Choking
  4. BENADRYL [Suspect]
     Active Substance: DIPHENHYDRAMINE HYDROCHLORIDE
     Indication: Cough
     Dosage: UNK
  5. ZYRTEC [Suspect]
     Active Substance: CETIRIZINE HYDROCHLORIDE
     Indication: Cough
     Dosage: UNK
  6. AFRIN [Suspect]
     Active Substance: OXYMETAZOLINE
     Dosage: UNK
  7. ATARAX [Suspect]
     Active Substance: HYDROXYZINE HYDROCHLORIDE
     Indication: Choking
     Dosage: UNK
  8. DEXTROMETHORPHAN [Suspect]
     Active Substance: DEXTROMETHORPHAN
     Indication: Nasal congestion
     Dosage: UNK
  9. KLONOPIN [Suspect]
     Active Substance: CLONAZEPAM
     Indication: Cough
     Dosage: UNK

REACTIONS (1)
  - Anaphylactic reaction [Unknown]
